FAERS Safety Report 14474112 (Version 1)
Quarter: 2018Q1

REPORT INFORMATION
  Report Type: Spontaneous
  Country: US (occurrence: US)
  Receive Date: 20180131
  Receipt Date: 20180131
  Transmission Date: 20180509
  Serious: Yes (Hospitalization)
  Sender: FDA-Public Use
  Company Number: None

PATIENT
  Age: 71 Year
  Sex: Male
  Weight: 117.21 kg

DRUGS (2)
  1. HEPARIN [Suspect]
     Active Substance: HEPARIN SODIUM
     Indication: ATRIAL FIBRILLATION
     Route: 042
     Dates: start: 20171224, end: 20180105
  2. HEPARIN [Suspect]
     Active Substance: HEPARIN SODIUM
     Indication: THROMBOSIS
     Route: 042
     Dates: start: 20171224, end: 20180105

REACTIONS (3)
  - Thrombocytopenia [None]
  - Therapy cessation [None]
  - Heparin-induced thrombocytopenia [None]

NARRATIVE: CASE EVENT DATE: 20180105
